FAERS Safety Report 4530818-6 (Version None)
Quarter: 2004Q4

REPORT INFORMATION
  Report Type: 
  Country: None (occurrence: None)
  Receive Date: 20041129
  Receipt Date: 20041021
  Transmission Date: 20050328
  Serious: Yes (Hospitalization)
  Sender: FDA-Public Use
  Company Number: US_0405103085

PATIENT
  Age: 79 Year
  Sex: Female
  Weight: 59 kg

DRUGS (8)
  1. ZYPREXA [Suspect]
     Indication: BIPOLAR DISORDER
     Dosage: 25 MG DAY
     Dates: start: 20000201, end: 20021101
  2. LITHIUM [Concomitant]
  3. PAXIL [Concomitant]
  4. NEURONTIN (GABAPENTIN PFIZER) [Concomitant]
  5. KLONOPIN [Concomitant]
  6. ATIVAN [Concomitant]
  7. PRILOSEC (OMEPRAZOLE RATIOPHARM) [Concomitant]
  8. AMBIEN [Concomitant]

REACTIONS (14)
  - BLOOD CHOLESTEROL INCREASED [None]
  - BLOOD TRIGLYCERIDES DECREASED [None]
  - DECREASED APPETITE [None]
  - DEPRESSION [None]
  - DIABETES MELLITUS [None]
  - DYSARTHRIA [None]
  - HEPATIC ENZYME INCREASED [None]
  - HEPATIC FUNCTION ABNORMAL [None]
  - HYPERGLYCAEMIA [None]
  - HYPERTENSION [None]
  - POLYDIPSIA [None]
  - POLYURIA [None]
  - PRESCRIBED OVERDOSE [None]
  - VISION BLURRED [None]
